FAERS Safety Report 7449616-9 (Version None)
Quarter: 2011Q2

REPORT INFORMATION
  Report Type: 
  Country: None (occurrence: None)
  Receive Date: 20110502
  Receipt Date: 20110412
  Transmission Date: 20111010
  Serious: No
  Sender: FDA-Public Use
  Company Number: US-BAYER-2011-032517

PATIENT
  Age: 60 Year
  Sex: Female
  Weight: 93 kg

DRUGS (3)
  1. ALEVE (CAPLET) [Suspect]
     Indication: ANALGESIC THERAPY
     Dosage: 6 DF, TID
     Dates: start: 20110410, end: 20110410
  2. CYCLOBEDENZA PRINELOME [Concomitant]
  3. RAMIPRIL [Concomitant]

REACTIONS (1)
  - NO ADVERSE EVENT [None]
